FAERS Safety Report 12962680 (Version 2)
Quarter: 2016Q4

REPORT INFORMATION
  Report Type: Spontaneous
  Country: US (occurrence: US)
  Receive Date: 20161121
  Receipt Date: 20161218
  Transmission Date: 20170207
  Serious: No
  Sender: FDA-Public Use
  Company Number: US-TAIHO ONCOLOGY INC-EU-2016-02441

PATIENT
  Age: 48 Year
  Sex: Male

DRUGS (3)
  1. ACETYLSALICYLIC ACID [Concomitant]
     Active Substance: ASPIRIN
  2. LONSURF [Suspect]
     Active Substance: TIPIRACIL HYDROCHLORIDE\TRIFLURIDINE
     Indication: COLORECTAL CANCER
     Route: 048
     Dates: start: 20160620
  3. TYLENOL [Concomitant]
     Active Substance: ACETAMINOPHEN

REACTIONS (6)
  - Decreased appetite [Unknown]
  - Paraesthesia [Unknown]
  - Hypoaesthesia [Unknown]
  - Headache [Unknown]
  - Abdominal pain [Unknown]
  - Dysgeusia [Unknown]

NARRATIVE: CASE EVENT DATE: 201609
